FAERS Safety Report 9713814 (Version 1)
Quarter: 2013Q4

REPORT INFORMATION
  Report Type: Spontaneous
  Country: US (occurrence: None)
  Receive Date: 20131126
  Receipt Date: 20131126
  Transmission Date: 20140711
  Serious: Yes (Other)
  Sender: FDA-Public Use
  Company Number: None

PATIENT
  Age: 58 Year
  Sex: Female
  Weight: 81.65 kg

DRUGS (8)
  1. BOTOX [Suspect]
     Indication: BLEPHAROSPASM
     Dosage: 250 MG PER 500 ML. OR 1 G, (FOR EXAMPLE 2 PILLS, 2 PUFFS OR 1 TEASPONS, ETC.) 1 VIAL
     Dates: start: 20021020, end: 20130808
  2. VITS C/D [Concomitant]
  3. Q10 [Concomitant]
  4. NIACIN [Concomitant]
  5. CALCIUM [Concomitant]
  6. CINNAMON [Concomitant]
  7. CRANBERRY [Concomitant]
  8. BLOOD PRESSURE [Concomitant]

REACTIONS (6)
  - Dry mouth [None]
  - Dry eye [None]
  - Flank pain [None]
  - Movement disorder [None]
  - Impaired work ability [None]
  - Speech disorder [None]
